FAERS Safety Report 14527180 (Version 2)
Quarter: 2018Q1

REPORT INFORMATION
  Report Type: Spontaneous
  Country: ZA (occurrence: ZA)
  Receive Date: 20180213
  Receipt Date: 20180305
  Transmission Date: 20180509
  Serious: Yes (Other)
  Sender: FDA-Public Use
  Company Number: ZA-PFIZER INC-2018060834

PATIENT
  Sex: Female

DRUGS (5)
  1. METHOTREXATE. [Suspect]
     Active Substance: METHOTREXATE
     Dosage: 25 MG, WEEKLY
     Route: 048
     Dates: start: 2013
  2. ENDOXAN /00021101/ [Suspect]
     Active Substance: CYCLOPHOSPHAMIDE
     Dosage: 500 MG, UNK
     Route: 042
     Dates: start: 201709, end: 201801
  3. ARAVA [Suspect]
     Active Substance: LEFLUNOMIDE
     Dosage: 20 MG, DAILY
     Dates: start: 2013
  4. SALAZOPYRIN [Suspect]
     Active Substance: SULFASALAZINE
     Dosage: UNK
  5. CHLOROQUINE. [Suspect]
     Active Substance: CHLOROQUINE
     Dosage: 200 MG, DAILY
     Dates: start: 2013

REACTIONS (1)
  - Rheumatoid arthritis [Unknown]
